FAERS Safety Report 6341947-9 (Version None)
Quarter: 2009Q3

REPORT INFORMATION
  Report Type: 
  Country: None (occurrence: None)
  Receive Date: 20090904
  Receipt Date: 20090825
  Transmission Date: 20100115
  Serious: Yes (Hospitalization)
  Sender: FDA-Public Use
  Company Number: CL-ABBOTT-09P-034-0593688-00

PATIENT
  Sex: Female
  Weight: 58 kg

DRUGS (9)
  1. HUMIRA [Suspect]
     Indication: RHEUMATOID ARTHRITIS
     Route: 058
     Dates: start: 20080301
  2. LANZOPRAZOLE [Concomitant]
     Indication: PROPHYLAXIS AGAINST GASTROINTESTINAL ULCER
     Route: 048
     Dates: start: 20041101
  3. THROSPII CHLORIDUM [Concomitant]
     Indication: PROPHYLAXIS URINARY TRACT INFECTION
     Route: 048
     Dates: start: 20060101
  4. VALSARTAN [Concomitant]
     Indication: HYPERTENSION
     Route: 048
     Dates: start: 20050101
  5. DEFLAZACORT [Concomitant]
     Indication: RHEUMATOID ARTHRITIS
     Route: 048
     Dates: start: 20041101, end: 20090817
  6. CLONAZEPAM [Concomitant]
     Indication: DEPRESSION
     Dosage: 0.25MG IN THE MORNING 0.50MG AT NOON
     Route: 048
     Dates: start: 20040101
  7. TRAZODONE [Concomitant]
     Indication: DEPRESSION
     Route: 048
     Dates: start: 20040101
  8. VARENCICLINE [Concomitant]
     Indication: SMOKING CESSATION THERAPY
     Route: 048
     Dates: start: 20090803
  9. NICOTINE [Concomitant]
     Indication: SMOKING CESSATION THERAPY
     Dosage: DERMAL PATCH
     Dates: start: 20090803

REACTIONS (4)
  - BRONCHIAL OBSTRUCTION [None]
  - COUGH [None]
  - DYSPNOEA [None]
  - GENERAL PHYSICAL HEALTH DETERIORATION [None]
